FAERS Safety Report 18227660 (Version 4)
Quarter: 2020Q4

REPORT INFORMATION
  Report Type: Report from Study
  Country: US (occurrence: US)
  Receive Date: 20200903
  Receipt Date: 20201128
  Transmission Date: 20210113
  Serious: Yes (Other)
  Sender: FDA-Public Use
  Company Number: NVSC2020US229855

PATIENT
  Age: 65 Year
  Sex: Male

DRUGS (2)
  1. COSENTYX [Suspect]
     Active Substance: SECUKINUMAB
     Indication: PSORIATIC ARTHROPATHY
     Dosage: UNK UNK, UNKNOWN
     Route: 058
  2. COSENTYX [Suspect]
     Active Substance: SECUKINUMAB
     Dosage: UNK (DOSE INCREASED)
     Route: 058

REACTIONS (9)
  - Arthralgia [Unknown]
  - Back pain [Unknown]
  - Muscle strain [Unknown]
  - Drug ineffective [Unknown]
  - Coccydynia [Unknown]
  - Nephropathy [Unknown]
  - Blood glucose increased [Unknown]
  - Psoriatic arthropathy [Unknown]
  - Neuropathy peripheral [Unknown]
